FAERS Safety Report 22981718 (Version 4)
Quarter: 2025Q3

REPORT INFORMATION
  Report Type: Report from Study
  Country: CO (occurrence: CO)
  Receive Date: 20230925
  Receipt Date: 20250919
  Transmission Date: 20251020
  Serious: Yes (Other)
  Sender: ROCHE
  Company Number: CO-002147023-NVSC2021CO301193

PATIENT
  Age: 52 Year
  Sex: Female
  Weight: 88.0 kg

DRUGS (9)
  1. XOLAIR [Suspect]
     Active Substance: OMALIZUMAB
     Indication: Chronic spontaneous urticaria
     Dosage: 300 MG, QMO (2 OF (300MG))
     Route: 058
     Dates: start: 202208, end: 202304
  2. XOLAIR [Suspect]
     Active Substance: OMALIZUMAB
     Indication: Urticaria
     Dosage: 450 MG, QMO (3 OF (450MG)
     Route: 058
  3. XOLAIR [Suspect]
     Active Substance: OMALIZUMAB
     Dosage: 600 MG, QMO (4 OF (600MG)
     Route: 058
     Dates: start: 202304
  4. XOLAIR [Suspect]
     Active Substance: OMALIZUMAB
     Route: 058
     Dates: start: 20230818
  5. XOLAIR [Suspect]
     Active Substance: OMALIZUMAB
     Dosage: 450 MG, QMO
     Route: 058
     Dates: start: 20230818
  6. XOLAIR [Suspect]
     Active Substance: OMALIZUMAB
     Route: 058
     Dates: start: 2022
  7. XOLAIR [Suspect]
     Active Substance: OMALIZUMAB
     Route: 058
     Dates: start: 20240126
  8. XOLAIR [Suspect]
     Active Substance: OMALIZUMAB
     Route: 058
     Dates: start: 20211230
  9. XOLAIR [Suspect]
     Active Substance: OMALIZUMAB
     Route: 065
     Dates: start: 20250812

REACTIONS (11)
  - Urticaria [Not Recovered/Not Resolved]
  - Swelling face [Recovered/Resolved]
  - Incorrect dose administered [Unknown]
  - Drug ineffective [Unknown]
  - Illness [Unknown]
  - Stress [Unknown]
  - Peripheral swelling [Unknown]
  - Diarrhoea [Unknown]
  - Weight increased [Not Recovered/Not Resolved]
  - Swelling [Not Recovered/Not Resolved]
  - Hypersensitivity [Not Recovered/Not Resolved]
